FAERS Safety Report 5635045-7 (Version None)
Quarter: 2008Q1

REPORT INFORMATION
  Report Type: 
  Country: None (occurrence: None)
  Receive Date: 20080222
  Receipt Date: 20080212
  Transmission Date: 20080703
  Serious: Yes (Other)
  Sender: FDA-Public Use
  Company Number: DE-GILEAD-2008-0015001

PATIENT
  Sex: Male
  Weight: 70 kg

DRUGS (4)
  1. VIREAD [Suspect]
     Indication: HIV INFECTION
     Dates: start: 20060101, end: 20080101
  2. VIDEX [Concomitant]
  3. ZERIT [Concomitant]
  4. RESCRIPTOR [Concomitant]

REACTIONS (2)
  - ABDOMINAL PAIN UPPER [None]
  - VIRAL LOAD INCREASED [None]
